FAERS Safety Report 5070921-8 (Version None)
Quarter: 2006Q3

REPORT INFORMATION
  Report Type: 
  Country: None (occurrence: None)
  Receive Date: 20060804
  Receipt Date: 20060331
  Transmission Date: 20061208
  Serious: Yes (Hospitalization, Other)
  Sender: FDA-Public Use
  Company Number: PHBS2006NZ04769

PATIENT
  Age: 34 Year
  Sex: Female

DRUGS (2)
  1. CLOZARIL [Suspect]
     Dosage: 300 MG/D
     Route: 048
     Dates: start: 20060725
  2. CLOZARIL [Suspect]
     Dosage: 400 MG/D
     Route: 048

REACTIONS (9)
  - CONSTIPATION [None]
  - DEHYDRATION [None]
  - FATIGUE [None]
  - HEART RATE INCREASED [None]
  - INTESTINAL FUNCTIONAL DISORDER [None]
  - NAUSEA [None]
  - ORTHOSTATIC HYPOTENSION [None]
  - RETCHING [None]
  - URINARY TRACT INFECTION [None]
